FAERS Safety Report 23139641 (Version 1)
Quarter: 2023Q4

REPORT INFORMATION
  Report Type: Spontaneous
  Country: BR (occurrence: BR)
  Receive Date: 20231102
  Receipt Date: 20231102
  Transmission Date: 20240110
  Serious: Yes (Hospitalization)
  Sender: FDA-Public Use
  Company Number: BR-FreseniusKabi-FK202317319

PATIENT
  Sex: Female

DRUGS (1)
  1. SODIUM CHLORIDE [Suspect]
     Active Substance: SODIUM CHLORIDE
     Indication: Hydrolipoclasy
     Dosage: DOSAGE AND FREQUENCY NOT INFORMED
     Route: 065

REACTIONS (2)
  - Hypersensitivity [Unknown]
  - Suspected product contamination [Unknown]
